FAERS Safety Report 19363249 (Version 2)
Quarter: 2021Q2

REPORT INFORMATION
  Report Type: Report from Study
  Country: None (occurrence: KW)
  Receive Date: 20210602
  Receipt Date: 20210610
  Transmission Date: 20210717
  Serious: Yes (Hospitalization)
  Sender: FDA-Public Use
  Company Number: KW-ABBVIE-21K-091-3904193-00

PATIENT
  Age: 72 Year
  Sex: Male

DRUGS (9)
  1. MELATONIN [Concomitant]
     Active Substance: MELATONIN
     Indication: SLEEP DISORDER THERAPY
     Dosage: ONCE A DAY AT NIGHT
     Route: 050
  2. NUTRICIA L VALINE [Concomitant]
     Indication: ENTERAL NUTRITION
     Dosage: NUTRICIA FORTICARE
     Route: 050
  3. LEVACIN [Concomitant]
     Indication: PARKINSON^S DISEASE
     Dosage: 200/50MG AT NIGHT
     Route: 050
  4. DUODOPA [Suspect]
     Active Substance: CARBIDOPA\LEVODOPA
     Indication: PARKINSON^S DISEASE
     Dosage: MD 14ML, CONTINUOUS RATE 6.5ML/HR, ED 4ML?CONTINUOUS OVER 16 HOURS?20 MG/ML 5 MG/ML
     Route: 050
     Dates: start: 20210308, end: 20210511
  5. EZIPECT [Concomitant]
     Indication: BRONCHIAL SECRETION RETENTION
     Route: 050
  6. FRESUBIN RENAL [Concomitant]
     Indication: ENTERAL NUTRITION
     Route: 050
  7. KULAX [Concomitant]
     Indication: LAXATIVE SUPPORTIVE CARE
     Route: 050
  8. DUODOPA [Suspect]
     Active Substance: CARBIDOPA\LEVODOPA
     Dosage: MD 14ML, CONTINUOUS RATE 6.5ML/HR, EXTRA DOSE 4.5ML.?CONTINUOUS OVER 16 HOURS.
     Route: 050
     Dates: start: 20210511
  9. SINEMET [Concomitant]
     Active Substance: CARBIDOPA\LEVODOPA
     Indication: PARKINSON^S DISEASE
     Dosage: 25/100 MILLIGRAMS AT NIGHT?ONCE A DAY
     Route: 050

REACTIONS (5)
  - Hyperhidrosis [Recovering/Resolving]
  - Tremor [Recovering/Resolving]
  - Musculoskeletal stiffness [Recovering/Resolving]
  - Jaw fracture [Not Recovered/Not Resolved]
  - Fall [Unknown]

NARRATIVE: CASE EVENT DATE: 2021
